FAERS Safety Report 9513736 (Version 1)
Quarter: 2013Q3

REPORT INFORMATION
  Report Type: Spontaneous
  Country: US (occurrence: US)
  Receive Date: 20130910
  Receipt Date: 20130910
  Transmission Date: 20140515
  Serious: Yes (Death, Hospitalization)
  Sender: FDA-Public Use
  Company Number: US-MYLANLABS-2013S1019583

PATIENT
  Age: 65 Year
  Sex: Female

DRUGS (2)
  1. BISOPROLOL FUMARATE TABLETS [Suspect]
     Indication: CARDIAC FIBRILLATION
     Route: 048
     Dates: start: 20120709, end: 20130423
  2. BISOPROLOL FUMARATE [Suspect]
     Indication: OFF LABEL USE
     Route: 048
     Dates: start: 20120709, end: 20130423

REACTIONS (3)
  - Cardiac fibrillation [Fatal]
  - Pulmonary oedema [Fatal]
  - Drug dose omission [Fatal]
